FAERS Safety Report 6362745-6 (Version None)
Quarter: 2009Q3

REPORT INFORMATION
  Report Type: 
  Country: None (occurrence: None)
  Receive Date: 20090919
  Receipt Date: 20090609
  Transmission Date: 20100115
  Serious: Yes (Hospitalization)
  Sender: FDA-Public Use
  Company Number: US-ABBOTT-09P-163-0578688-00

PATIENT
  Sex: Female
  Weight: 74.002 kg

DRUGS (9)
  1. HUMIRA [Suspect]
     Indication: PSORIASIS
     Dosage: LOADING DOSE 80 MG
     Route: 058
     Dates: start: 20090603
  2. MORPHINE [Concomitant]
     Indication: PAIN
     Route: 048
  3. OXYCODONE [Concomitant]
     Indication: PAIN
     Route: 048
  4. TRAZODONE HCL [Concomitant]
     Indication: INSOMNIA
     Route: 048
  5. TRAZODONE HCL [Concomitant]
     Indication: DEPRESSION
  6. HYDROXYZINE [Concomitant]
     Indication: ANXIETY
     Route: 048
  7. SEROQUEL [Concomitant]
     Indication: INSOMNIA
     Route: 048
  8. SEROQUEL [Concomitant]
     Indication: DEPRESSION
  9. METHOTREXATE [Concomitant]
     Indication: PSORIASIS
     Route: 048

REACTIONS (3)
  - BACK PAIN [None]
  - FALL [None]
  - PNEUMONIA [None]
